FAERS Safety Report 4788896-5 (Version None)
Quarter: 2005Q4

REPORT INFORMATION
  Report Type: 
  Country: None (occurrence: None)
  Receive Date: 20051004
  Receipt Date: 20050922
  Transmission Date: 20060501
  Serious: Yes (Disabling)
  Sender: FDA-Public Use
  Company Number: ST-2005-008607

PATIENT
  Age: 79 Year
  Sex: Female

DRUGS (12)
  1. OLMETEC [Suspect]
     Indication: HYPERTENSION
     Dosage: 20 MG QD PO
     Route: 048
     Dates: start: 20050813, end: 20050825
  2. CRAVIT [Suspect]
     Indication: BRONCHITIS ACUTE
     Dosage: 100 MG TID PO
     Route: 048
     Dates: start: 20050820, end: 20050824
  3. AMARYL [Suspect]
     Indication: DIABETES MELLITUS
     Dosage: 1.5 MG DAILY PO
     Route: 048
     Dates: start: 20031002, end: 20050824
  4. AMARYL [Suspect]
     Indication: DIABETES MELLITUS
     Dosage: 1 MG QD PO
     Route: 048
     Dates: start: 20050826, end: 20050827
  5. AMARYL [Suspect]
     Indication: DIABETES MELLITUS
     Dosage: 1.5 MG DAILY PO
     Route: 048
     Dates: start: 20050828
  6. BASEN [Suspect]
     Indication: DIABETES MELLITUS
     Dosage: 0.3 MG TID PO
     Route: 048
     Dates: start: 20031002, end: 20050824
  7. BASEN [Suspect]
     Indication: DIABETES MELLITUS
     Dosage: 0.3 MG TID PO
     Route: 048
     Dates: start: 20050828
  8. PANALDINE [Concomitant]
  9. GASTER [Concomitant]
  10. NITOROL [Concomitant]
  11. CALCITRIOL [Concomitant]
  12. LYSOZYME HYDROCHLORIDE [Concomitant]

REACTIONS (6)
  - BRONCHITIS ACUTE [None]
  - DEPRESSED LEVEL OF CONSCIOUSNESS [None]
  - DYSARTHRIA [None]
  - HYPERTENSION [None]
  - HYPOGLYCAEMIA [None]
  - TREMOR [None]
